FAERS Safety Report 10362793 (Version 2)
Quarter: 2014Q3

REPORT INFORMATION
  Report Type: Report from Study
  Country: BR (occurrence: BR)
  Receive Date: 20140805
  Receipt Date: 20140819
  Transmission Date: 20150326
  Serious: Yes (Hospitalization, Other)
  Sender: FDA-Public Use
  Company Number: PHHY2014BR095392

PATIENT
  Age: 87 Year
  Sex: Male
  Weight: 85 kg

DRUGS (4)
  1. DIGOXIN. [Concomitant]
     Active Substance: DIGOXIN
     Indication: CARDIAC DISORDER
     Dosage: 1 DF, UNK
     Route: 048
  2. EXELON PATCH [Suspect]
     Active Substance: RIVASTIGMINE
     Indication: DEMENTIA
     Dosage: 9.5 MG, QD (10CM2/18MG ONE PATCH DAILY)
     Route: 062
  3. HIDRION [Concomitant]
     Indication: DIURETIC THERAPY
     Dosage: 1 DF, DAILY
     Route: 048
  4. MARCOUMAR [Concomitant]
     Active Substance: PHENPROCOUMON
     Indication: CARDIAC DISORDER
     Dosage: 0.5 DF, DAILY

REACTIONS (5)
  - Mutism [Recovering/Resolving]
  - Blood glucose increased [Recovered/Resolved]
  - Memory impairment [Recovering/Resolving]
  - Urinary tract infection [Recovered/Resolved]
  - Feeling abnormal [Recovering/Resolving]

NARRATIVE: CASE EVENT DATE: 201405
